FAERS Safety Report 17098580 (Version 3)
Quarter: 2020Q1

REPORT INFORMATION
  Report Type: Spontaneous
  Country: US (occurrence: US)
  Receive Date: 20191202
  Receipt Date: 20200109
  Transmission Date: 20200409
  Serious: Yes (Other)
  Sender: FDA-Public Use
  Company Number: US-PFIZER INC-2019514356

PATIENT
  Age: 68 Year
  Sex: Female
  Weight: 65.76 kg

DRUGS (2)
  1. DILANTIN [Suspect]
     Active Substance: PHENYTOIN
     Indication: SEIZURE
     Dosage: 300 MG, 1X/DAY (AT NIGHT)
     Dates: start: 1972
  2. DILANTIN [Suspect]
     Active Substance: PHENYTOIN
     Dosage: 300 MG, 1X/DAY (AT NIGHT)
     Dates: start: 1992

REACTIONS (2)
  - Malaise [Unknown]
  - Aneurysm [Unknown]
